FAERS Safety Report 17643984 (Version 4)
Quarter: 2020Q4

REPORT INFORMATION
  Report Type: Report from Study
  Country: US (occurrence: US)
  Receive Date: 20200408
  Receipt Date: 20201027
  Transmission Date: 20210113
  Serious: Yes (Hospitalization, Other)
  Sender: FDA-Public Use
  Company Number: US-ASTRAZENECA-2020SE20328

PATIENT
  Age: 74 Year
  Sex: Female
  Weight: 81 kg

DRUGS (7)
  1. METFORMIN [Concomitant]
     Active Substance: METFORMIN HYDROCHLORIDE
     Indication: DIABETES MELLITUS
  2. PAXIRASOL [Concomitant]
  3. FARXIGA [Suspect]
     Active Substance: DAPAGLIFLOZIN PROPANEDIOL
     Indication: DIABETES MELLITUS
     Route: 048
     Dates: start: 20200102, end: 20200128
  4. LEVOTHYROXINE. [Concomitant]
     Active Substance: LEVOTHYROXINE
  5. FARXIGA [Suspect]
     Active Substance: DAPAGLIFLOZIN PROPANEDIOL
     Indication: DIABETES MELLITUS
     Dosage: 5.0MG UNKNOWN
     Route: 048
  6. FARXIGA [Suspect]
     Active Substance: DAPAGLIFLOZIN PROPANEDIOL
     Indication: DIABETES MELLITUS
     Dosage: 10.0MG UNKNOWN
     Route: 048
     Dates: start: 20191231
  7. CRESTOR [Concomitant]
     Active Substance: ROSUVASTATIN CALCIUM

REACTIONS (21)
  - Hyperhidrosis [Recovered/Resolved]
  - Heart rate increased [Recovering/Resolving]
  - Rash [Unknown]
  - Headache [Recovered/Resolved]
  - Head discomfort [Recovering/Resolving]
  - Hypophagia [Unknown]
  - Dizziness [Recovered/Resolved]
  - Intraocular pressure increased [Unknown]
  - Diarrhoea [Unknown]
  - Blood glucose increased [Unknown]
  - Stress [Unknown]
  - Urinary tract infection [Unknown]
  - Pain [Unknown]
  - Decreased appetite [Recovering/Resolving]
  - Fatigue [Recovered/Resolved]
  - Chest discomfort [Recovering/Resolving]
  - Autoscopy [Unknown]
  - Feeling abnormal [Not Recovered/Not Resolved]
  - Nausea [Recovered/Resolved]
  - Illness [Recovering/Resolving]
  - Palpitations [Recovering/Resolving]

NARRATIVE: CASE EVENT DATE: 20200102
